FAERS Safety Report 11223787 (Version 1)
Quarter: 2015Q2

REPORT INFORMATION
  Report Type: Spontaneous
  Country: US (occurrence: None)
  Receive Date: 20150625
  Receipt Date: 20150625
  Transmission Date: 20150821
  Serious: No
  Sender: FDA-Public Use
  Company Number: None

PATIENT
  Age: 64 Year
  Sex: Female

DRUGS (2)
  1. SOFOSBUVIR 400MG GILEAD [Suspect]
     Active Substance: SOFOSBUVIR
     Indication: HEPATITIS C
     Dosage: ONE  BY MOUTH  DAILY
     Route: 048
     Dates: start: 20150416
  2. LEDIPASVIR [Suspect]
     Active Substance: LEDIPASVIR
     Indication: HEPATITIS C
     Dosage: ONE  BY MOUTH  DAILY
     Route: 048
     Dates: start: 20150416

REACTIONS (2)
  - Miliaria [None]
  - Rash [None]

NARRATIVE: CASE EVENT DATE: 20150622
